FAERS Safety Report 4901918-3 (Version None)
Quarter: 2006Q1

REPORT INFORMATION
  Report Type: 
  Country: None (occurrence: None)
  Receive Date: 20060202
  Receipt Date: 20060202
  Transmission Date: 20060701
  Serious: Yes (Other)
  Sender: FDA-Public Use
  Company Number: None

PATIENT
  Sex: Male

DRUGS (4)
  1. TAMBOCOR [Suspect]
     Indication: ATRIAL FIBRILLATION
     Dosage: 100 MG PO BID
     Route: 048
     Dates: start: 20050914, end: 20050921
  2. CALCIUM GLUCONATE [Concomitant]
  3. ASPIRIN [Concomitant]
  4. GLUCOSAMINE [Concomitant]

REACTIONS (2)
  - DIZZINESS [None]
  - HEADACHE [None]
